FAERS Safety Report 4934161-2 (Version None)
Quarter: 2006Q1

REPORT INFORMATION
  Report Type: 
  Country: None (occurrence: None)
  Receive Date: 20060303
  Receipt Date: 20060220
  Transmission Date: 20060701
  Serious: Yes (Death, Life-Threatening)
  Sender: FDA-Public Use
  Company Number: 601732

PATIENT
  Age: 73 Year
  Sex: Male

DRUGS (3)
  1. FEIBA VH IMMUNO [Suspect]
     Indication: HAEMATOMA
     Dosage: 5000 IU; 2X A DAY;
     Dates: start: 20041217, end: 20041220
  2. FEIBA VH IMMUNO [Suspect]
     Indication: HAEMOPHILIA A WITH ANTI FACTOR VIII
     Dosage: 5000 IU; 2X A DAY;
     Dates: start: 20041217, end: 20041220
  3. FEIBA VH IMMUNO [Suspect]

REACTIONS (1)
  - MYOCARDIAL INFARCTION [None]
